FAERS Safety Report 22180250 (Version 1)
Quarter: 2023Q2

REPORT INFORMATION
  Report Type: Spontaneous
  Country: US (occurrence: US)
  Receive Date: 20230406
  Receipt Date: 20230406
  Transmission Date: 20230722
  Serious: No
  Sender: FDA-Public Use
  Company Number: US-LEO Pharma-350806

PATIENT
  Age: 79 Year
  Sex: Male

DRUGS (4)
  1. CLOBETASOL [Concomitant]
     Active Substance: CLOBETASOL
     Indication: Product used for unknown indication
  2. HYDROCORTISONE IODOQUINOL [Concomitant]
     Active Substance: HYDROCORTISONE\IODOQUINOL
     Indication: Product used for unknown indication
  3. TACROLIMUS [Suspect]
     Active Substance: TACROLIMUS
     Indication: Eczema
     Dates: end: 20230205
  4. OPZELURA [Suspect]
     Active Substance: RUXOLITINIB PHOSPHATE
     Indication: Eczema
     Dates: end: 20230205

REACTIONS (4)
  - Hypersensitivity [Unknown]
  - Pruritus [Unknown]
  - Erythema [Unknown]
  - Insomnia [Unknown]
